FAERS Safety Report 4767004-0 (Version None)
Quarter: 2005Q3

REPORT INFORMATION
  Report Type: 
  Country: None (occurrence: None)
  Receive Date: 20050908
  Receipt Date: 20050826
  Transmission Date: 20060218
  Serious: Yes (Death)
  Sender: FDA-Public Use
  Company Number: 2005JP001605

PATIENT

DRUGS (2)
  1. PROGRAF [Suspect]
     Indication: LIVER TRANSPLANT
  2. STEROID [Concomitant]

REACTIONS (4)
  - DISEASE RECURRENCE [None]
  - HEPATITIS [None]
  - INFECTION [None]
  - POST PROCEDURAL COMPLICATION [None]
